FAERS Safety Report 17044444 (Version 2)
Quarter: 2019Q4

REPORT INFORMATION
  Report Type: Report from Study
  Country: US (occurrence: US)
  Receive Date: 20191118
  Receipt Date: 20191126
  Transmission Date: 20200122
  Serious: No
  Sender: FDA-Public Use
  Company Number: US-GILEAD-2019-0437979

PATIENT
  Age: 38 Year
  Sex: Male
  Weight: 104.3 kg

DRUGS (2)
  1. ELVITEGRAVIR/COBICISTAT/EMTRICITABINE/TENOFOVIR ALAFENAMIDE [Suspect]
     Active Substance: COBICISTAT\ELVITEGRAVIR\EMTRICITABINE\TENOFOVIR
     Indication: HIV INFECTION
     Dosage: 1 DOSAGE FORM, QD
     Route: 065
     Dates: start: 20191107
  2. ELVITEGRAVIR/COBICISTAT/EMTRICITABINE/TENOFOVIR ALAFENAMIDE [Suspect]
     Active Substance: COBICISTAT\ELVITEGRAVIR\EMTRICITABINE\TENOFOVIR
     Dosage: 510 MG, QD
     Route: 048

REACTIONS (3)
  - Product dose omission [Unknown]
  - Product physical issue [Not Recovered/Not Resolved]
  - Product use issue [Unknown]
